FAERS Safety Report 21755204 (Version 1)
Quarter: 2022Q4

REPORT INFORMATION
  Report Type: Report from Study
  Country: US (occurrence: US)
  Receive Date: 20221220
  Receipt Date: 20221220
  Transmission Date: 20230113
  Serious: Yes (Other)
  Sender: FDA-Public Use
  Company Number: US-ABBVIE-4197903

PATIENT
  Sex: Female

DRUGS (2)
  1. SYNTHROID [Suspect]
     Active Substance: LEVOTHYROXINE SODIUM
     Indication: Product used for unknown indication
     Route: 048
  2. ANTRONEX [Concomitant]
     Indication: Product used for unknown indication

REACTIONS (4)
  - Thyroidectomy [Unknown]
  - Adverse drug reaction [Unknown]
  - Drug ineffective [Unknown]
  - Feeling abnormal [Unknown]
